FAERS Safety Report 19837780 (Version 1)
Quarter: 2021Q3

REPORT INFORMATION
  Report Type: Spontaneous
  Country: CA (occurrence: CA)
  Receive Date: 20210914
  Receipt Date: 20210914
  Transmission Date: 20211014
  Serious: Yes (Other)
  Sender: FDA-Public Use
  Company Number: CA-CELLTRION INC.-2021CA012498

PATIENT

DRUGS (1)
  1. INFLECTRA [Suspect]
     Active Substance: INFLIXIMAB-DYYB
     Indication: CROHN^S DISEASE
     Dosage: 1 DF
     Dates: start: 20210827

REACTIONS (3)
  - Rectal haemorrhage [Not Recovered/Not Resolved]
  - Pyoderma gangrenosum [Unknown]
  - Abnormal faeces [Unknown]
